FAERS Safety Report 18519159 (Version 2)
Quarter: 2020Q4

REPORT INFORMATION
  Report Type: Spontaneous
  Country: US (occurrence: US)
  Receive Date: 20201118
  Receipt Date: 20201125
  Transmission Date: 20210114
  Serious: Yes (Other)
  Sender: FDA-Public Use
  Company Number: US-PFIZER INC-2020446970

PATIENT
  Age: 89 Year
  Sex: Female
  Weight: 60.33 kg

DRUGS (2)
  1. PROTONIX [Suspect]
     Active Substance: PANTOPRAZOLE SODIUM
     Indication: DYSPEPSIA
  2. PROTONIX [Suspect]
     Active Substance: PANTOPRAZOLE SODIUM
     Indication: ABDOMINAL DISTENSION
     Dosage: 40 MG, 1X/DAY (TAKE ONCE DAILY BY MOUTH)
     Route: 048
     Dates: start: 201912

REACTIONS (8)
  - Decreased appetite [Not Recovered/Not Resolved]
  - Product use in unapproved indication [Unknown]
  - Nausea [Not Recovered/Not Resolved]
  - Vitamin B12 decreased [Recovering/Resolving]
  - Loss of consciousness [Unknown]
  - Condition aggravated [Unknown]
  - Constipation [Unknown]
  - Off label use [Unknown]

NARRATIVE: CASE EVENT DATE: 201912
